FAERS Safety Report 24625638 (Version 1)
Quarter: 2024Q4

REPORT INFORMATION
  Report Type: Spontaneous
  Country: CA (occurrence: CA)
  Receive Date: 20241115
  Receipt Date: 20241115
  Transmission Date: 20250114
  Serious: Yes (Other)
  Sender: CSL BEHRING
  Company Number: CA-BEH-2024185384

PATIENT
  Age: 63 Year
  Sex: Female

DRUGS (2)
  1. ALBUMIN HUMAN [Suspect]
     Active Substance: ALBUMIN HUMAN
     Indication: Ovarian cancer
     Dosage: 250 ML
     Route: 042
  2. ALBUMIN HUMAN [Suspect]
     Active Substance: ALBUMIN HUMAN
     Indication: Anaemia

REACTIONS (9)
  - Dyspnoea [Unknown]
  - Allergic transfusion reaction [Unknown]
  - Blood pressure decreased [Unknown]
  - Heart rate increased [Unknown]
  - Oxygen saturation decreased [Unknown]
  - Palpitations [Unknown]
  - Respiratory rate decreased [Unknown]
  - Tachycardia [Unknown]
  - Urticaria [Unknown]
